FAERS Safety Report 25994011 (Version 1)
Quarter: 2025Q4

REPORT INFORMATION
  Report Type: Spontaneous
  Country: TH (occurrence: TH)
  Receive Date: 20251104
  Receipt Date: 20251104
  Transmission Date: 20260117
  Serious: Yes (Death)
  Sender: MERCK SHARP & DOHME LLC
  Company Number: TH-009507513-2344283

PATIENT
  Age: 64 Year
  Sex: Female

DRUGS (1)
  1. KEYTRUDA [Suspect]
     Active Substance: PEMBROLIZUMAB
     Indication: Transitional cell carcinoma
     Dosage: 200 MG, IV, Q 3 WEEKS ON 08OCT2025-08OCT2025
     Route: 042
     Dates: start: 20251008, end: 20251008

REACTIONS (1)
  - Death [Fatal]

NARRATIVE: CASE EVENT DATE: 20251026
